FAERS Safety Report 17083776 (Version 3)
Quarter: 2020Q1

REPORT INFORMATION
  Report Type: Spontaneous
  Country: JP (occurrence: JP)
  Receive Date: 20191127
  Receipt Date: 20200129
  Transmission Date: 20200409
  Serious: Yes (Other)
  Sender: FDA-Public Use
  Company Number: NVSC2019JP048781

PATIENT
  Age: 77 Year
  Sex: Female

DRUGS (6)
  1. CLINDAMYCIN HYDROCHLORIDE. [Suspect]
     Active Substance: CLINDAMYCIN HYDROCHLORIDE
     Indication: WOUND INFECTION STAPHYLOCOCCAL
     Dosage: 450 MG, QD
     Route: 065
  2. MINOMYCIN [Suspect]
     Active Substance: MINOCYCLINE HYDROCHLORIDE
     Indication: WOUND INFECTION STAPHYLOCOCCAL
     Dosage: UNK
     Route: 065
  3. CUBICIN [Suspect]
     Active Substance: DAPTOMYCIN
     Indication: WOUND INFECTION STAPHYLOCOCCAL
     Dosage: UNK
     Route: 042
  4. LEVOFLOXACIN. [Suspect]
     Active Substance: LEVOFLOXACIN
     Indication: WOUND INFECTION STAPHYLOCOCCAL
     Dosage: 500 MG, QD
     Route: 065
  5. MEROPENEM. [Suspect]
     Active Substance: MEROPENEM
     Indication: WOUND INFECTION STAPHYLOCOCCAL
     Dosage: UNK
     Route: 041
  6. PIPERACILLIN SODIUM [Suspect]
     Active Substance: PIPERACILLIN SODIUM
     Indication: WOUND INFECTION STAPHYLOCOCCAL
     Dosage: 4 G, QD
     Route: 042

REACTIONS (3)
  - Renal impairment [Recovering/Resolving]
  - Tubulointerstitial nephritis [Recovering/Resolving]
  - Glomerulonephritis acute [Recovering/Resolving]
